FAERS Safety Report 10762653 (Version 2)
Quarter: 2015Q1

REPORT INFORMATION
  Report Type: Spontaneous
  Country: US (occurrence: US)
  Receive Date: 20150204
  Receipt Date: 20150312
  Transmission Date: 20150721
  Serious: Yes (Other)
  Sender: FDA-Public Use
  Company Number: US-TEVA-538572USA

PATIENT
  Age: 20 Year
  Sex: Female

DRUGS (1)
  1. PARAGARD T 380A [Suspect]
     Active Substance: COPPER
     Indication: CONTRACEPTION
     Route: 015
     Dates: start: 20140609, end: 20150109

REACTIONS (6)
  - Uterine perforation [Recovered/Resolved]
  - Device dislocation [Recovered/Resolved]
  - Embedded device [Recovered/Resolved]
  - Presyncope [Unknown]
  - Dizziness [Unknown]
  - Abortion induced [Recovered/Resolved]

NARRATIVE: CASE EVENT DATE: 201412
